FAERS Safety Report 8547908-3 (Version None)
Quarter: 2012Q3

REPORT INFORMATION
  Report Type: 
  Country: None (occurrence: None)
  Receive Date: 20120728
  Receipt Date: 20120723
  Transmission Date: 20120928
  Serious: Yes (Other)
  Sender: FDA-Public Use
  Company Number: US-009507513-1207USA010685

PATIENT

DRUGS (1)
  1. ZOCOR [Suspect]
     Dosage: 40 MG, QD
     Route: 048

REACTIONS (8)
  - CONSTIPATION [None]
  - EAR PAIN [None]
  - SKIN DISCOLOURATION [None]
  - HEART RATE INCREASED [None]
  - TREMOR [None]
  - CHEST DISCOMFORT [None]
  - PULMONARY OEDEMA [None]
  - DYSPNOEA [None]
